FAERS Safety Report 7270624-5 (Version None)
Quarter: 2011Q1

REPORT INFORMATION
  Report Type: 
  Country: None (occurrence: None)
  Receive Date: 20110202
  Receipt Date: 20110128
  Transmission Date: 20110831
  Serious: Yes (Hospitalization)
  Sender: FDA-Public Use
  Company Number: A0887253A

PATIENT
  Age: 55 Year
  Sex: Male

DRUGS (2)
  1. AVANDIA [Suspect]
     Dosage: 8MG PER DAY
     Route: 048
     Dates: start: 20041112, end: 20070219
  2. AVANDAMET [Suspect]
     Route: 048
     Dates: start: 20000101, end: 20041112

REACTIONS (2)
  - STENT PLACEMENT [None]
  - MYOCARDIAL INFARCTION [None]
